FAERS Safety Report 5078735-X (Version None)
Quarter: 2006Q3

REPORT INFORMATION
  Report Type: 
  Country: None (occurrence: None)
  Receive Date: 20060808
  Receipt Date: 20060725
  Transmission Date: 20061208
  Serious: Yes (Hospitalization)
  Sender: FDA-Public Use
  Company Number: GXKR2006US04326

PATIENT
  Sex: Male

DRUGS (3)
  1. BUPROFEN (NGX) (BUPROPION) UNKNOWN [Suspect]
     Indication: DEPRESSION
  2. WELLBUTRIN [Suspect]
     Indication: DEPRESSION
  3. ZYBAN [Suspect]
     Indication: SMOKING CESSATION THERAPY

REACTIONS (7)
  - ACCIDENTAL OVERDOSE [None]
  - AGGRESSION [None]
  - AGITATION [None]
  - CONFUSIONAL STATE [None]
  - CONVULSION [None]
  - GASTROENTERITIS VIRAL [None]
  - MEDICATION ERROR [None]
